FAERS Safety Report 5088258-X (Version None)
Quarter: 2006Q3

REPORT INFORMATION
  Report Type: 
  Country: None (occurrence: None)
  Receive Date: 20060727
  Receipt Date: 20060612
  Transmission Date: 20061208
  Serious: Yes (Other)
  Sender: FDA-Public Use
  Company Number: 2006075610

PATIENT
  Age: 45 Year
  Sex: Female
  Weight: 87.0906 kg

DRUGS (5)
  1. LYRICA [Suspect]
     Indication: NEURALGIA
     Dosage: 150 MG (50 MG, 3 IN 1 D) UNKNOWN
     Route: 065
     Dates: start: 20060101, end: 20060301
  2. LORATADINE [Concomitant]
  3. HYDROCODONE (HYDROCODONE) [Concomitant]
  4. SKELAXIN [Concomitant]
  5. ACIPHEX [Concomitant]

REACTIONS (1)
  - ANGINA PECTORIS [None]
